FAERS Safety Report 4931383-1 (Version None)
Quarter: 2006Q1

REPORT INFORMATION
  Report Type: 
  Country: None (occurrence: None)
  Receive Date: 20060303
  Receipt Date: 20060222
  Transmission Date: 20060701
  Serious: Yes (Other)
  Sender: FDA-Public Use
  Company Number: PHEH2006US02556

PATIENT
  Sex: Female

DRUGS (1)
  1. ZOMETA [Suspect]
     Indication: BREAST CANCER METASTATIC

REACTIONS (5)
  - BONE DEBRIDEMENT [None]
  - DENTAL TREATMENT [None]
  - MOUTH ULCERATION [None]
  - ORAL PAIN [None]
  - TOOTH EXTRACTION [None]
